FAERS Safety Report 7760814-7 (Version None)
Quarter: 2011Q3

REPORT INFORMATION
  Report Type: 
  Country: None (occurrence: None)
  Receive Date: 20110919
  Receipt Date: 20110913
  Transmission Date: 20111222
  Serious: Yes (Life-Threatening, Hospitalization, Other)
  Sender: FDA-Public Use
  Company Number: US-ASTRAZENECA-2009SE26231

PATIENT
  Age: 81 Year
  Sex: Female

DRUGS (2)
  1. PRILOSEC [Suspect]
     Route: 048
  2. NEXIUM [Suspect]
     Indication: GASTROOESOPHAGEAL REFLUX DISEASE
     Route: 048
     Dates: start: 20070101

REACTIONS (9)
  - GASTROOESOPHAGEAL REFLUX DISEASE [None]
  - COMA [None]
  - HEARING IMPAIRED [None]
  - MALAISE [None]
  - ABDOMINAL PAIN UPPER [None]
  - INCORRECT DOSE ADMINISTERED [None]
  - DEHYDRATION [None]
  - MYOCARDIAL INFARCTION [None]
  - DRUG DOSE OMISSION [None]
